FAERS Safety Report 8465273 (Version 5)
Quarter: 2013Q3

REPORT INFORMATION
  Report Type: Spontaneous
  Country: US (occurrence: US)
  Receive Date: 20120319
  Receipt Date: 20130807
  Transmission Date: 20140515
  Serious: Yes (Hospitalization)
  Sender: FDA-Public Use
  Company Number: US-BAYER-2012-024623

PATIENT
  Age: 18 Year
  Sex: Female
  Weight: 59 kg

DRUGS (7)
  1. INDERAL [Concomitant]
     Indication: HEADACHE
     Dosage: UNK
     Route: 048
     Dates: start: 20051114
  2. ZANTAC [Concomitant]
     Dosage: UNK
     Route: 048
     Dates: start: 20051114
  3. YAZ [Suspect]
     Dosage: UNK
     Dates: start: 2002
  4. YASMIN [Suspect]
     Indication: ACNE
     Dosage: UNK
     Dates: start: 2002, end: 20051114
  5. YASMIN [Suspect]
     Indication: PREMENSTRUAL SYNDROME
  6. ADVIL [Concomitant]
     Dosage: UNK
     Dates: start: 2000
  7. TYLENOL [PARACETAMOL] [Concomitant]
     Dosage: UNK
     Dates: start: 2000

REACTIONS (6)
  - Cerebral thrombosis [Recovered/Resolved]
  - Transverse sinus thrombosis [None]
  - Jugular vein thrombosis [None]
  - Pain [Recovered/Resolved]
  - Injury [Recovered/Resolved]
  - Emotional distress [None]
